FAERS Safety Report 9986211 (Version 1)
Quarter: 2014Q1

REPORT INFORMATION
  Report Type: Spontaneous
  Country: PR (occurrence: PR)
  Receive Date: 20140307
  Receipt Date: 20140307
  Transmission Date: 20141002
  Serious: No
  Sender: FDA-Public Use
  Company Number: PR-ABBVIE-13P-131-1083408-00

PATIENT
  Age: 49 Year
  Sex: Female

DRUGS (14)
  1. HUMIRA [Suspect]
     Indication: PSORIASIS
     Route: 058
     Dates: start: 20130402
  2. HUMIRA [Suspect]
     Indication: PSORIATIC ARTHROPATHY
  3. HUMIRA [Suspect]
     Indication: OSTEOARTHRITIS
  4. VITAMIN B12 [Concomitant]
     Indication: MENTAL IMPAIRMENT
     Route: 048
     Dates: start: 2011
  5. VITAMIN D3 [Concomitant]
     Indication: OSTEOARTHRITIS
     Route: 048
     Dates: start: 201212
  6. RELAFEN [Concomitant]
     Indication: OSTEOARTHRITIS
     Dosage: DAILY
     Dates: start: 2012
  7. TRAMADOL [Concomitant]
     Indication: OSTEOARTHRITIS
     Dosage: DAILY
     Dates: start: 2012
  8. NAPROXEN [Concomitant]
     Indication: OSTEOARTHRITIS
     Dosage: 1 TAB QD PRN
     Dates: start: 2012
  9. SYNTHROID [Concomitant]
     Indication: HYPOTHYROIDISM
     Route: 048
     Dates: start: 1991
  10. METFORMIN [Concomitant]
     Indication: DIABETES MELLITUS
     Route: 048
     Dates: start: 2007
  11. BENADRYL [Concomitant]
     Indication: BRUXISM
     Dosage: QHS
     Route: 048
  12. KLONOPIN [Concomitant]
     Indication: ANXIETY
     Dosage: 1 TAB BID PRN
     Dates: start: 1995
  13. RISPERDAL [Concomitant]
     Indication: SCHIZOPHRENIA
     Route: 048
     Dates: start: 1995
  14. PROZAC [Concomitant]
     Indication: DEPRESSION
     Route: 048
     Dates: start: 1995

REACTIONS (1)
  - Vaginal haemorrhage [Recovered/Resolved]
